FAERS Safety Report 4416065-7 (Version None)
Quarter: 2004Q3

REPORT INFORMATION
  Report Type: 
  Country: None (occurrence: None)
  Receive Date: 20040802
  Receipt Date: 20040719
  Transmission Date: 20050211
  Serious: Yes (Hospitalization)
  Sender: FDA-Public Use
  Company Number: 2004049220

PATIENT
  Sex: Male

DRUGS (5)
  1. SERTRALINE HYDROCHLORIDE [Suspect]
     Indication: ILL-DEFINED DISORDER
     Dosage: 50 MG (50 MG, 1 IN 1 D), ORAL
     Route: 048
     Dates: end: 20040621
  2. ZOPICLONE (ZOPICLONE) [Suspect]
     Indication: SEDATION
     Dosage: 75 MG (75 M, 1 IN 1 D) ORAL
     Route: 048
  3. FRUMIL (AMILORIDE HYDROCHLORIDE, FUROSEMIDE) [Concomitant]
  4. CELECOXIB (CELECOXIB) [Concomitant]
  5. CIMETIDINE [Concomitant]

REACTIONS (3)
  - CONFUSIONAL STATE [None]
  - FALL [None]
  - HALLUCINATION, VISUAL [None]
